FAERS Safety Report 26118161 (Version 1)
Quarter: 2025Q4

REPORT INFORMATION
  Report Type: Report from Study
  Country: US (occurrence: US)
  Receive Date: 20251203
  Receipt Date: 20251203
  Transmission Date: 20260118
  Serious: No
  Sender: MALLINCKRODT
  Company Number: US-MALLINCKRODT-MNK202507170

PATIENT
  Age: 72 Year
  Sex: Female

DRUGS (1)
  1. CORTICOTROPIN [Suspect]
     Active Substance: CORTICOTROPIN
     Indication: Systemic lupus erythematosus
     Dosage: UNKNOWN
     Dates: start: 202511

REACTIONS (4)
  - Abdominal pain [Unknown]
  - Arthritis [Unknown]
  - Rash pruritic [Unknown]
  - Headache [Unknown]

NARRATIVE: CASE EVENT DATE: 20251101
